FAERS Safety Report 9206274 (Version 7)
Quarter: 2014Q1

REPORT INFORMATION
  Report Type: Spontaneous
  Country: US (occurrence: US)
  Receive Date: 20130403
  Receipt Date: 20140207
  Transmission Date: 20141002
  Serious: Yes (Other)
  Sender: FDA-Public Use
  Company Number: US-PFIZER INC-2013102201

PATIENT
  Age: 65 Year
  Sex: Male

DRUGS (8)
  1. INLYTA [Suspect]
     Indication: RENAL CANCER
     Dosage: 10 MG, 2X/DAY (5MG - TWO TABLETS TWICE DAILY)
     Dates: start: 201211
  2. INLYTA [Suspect]
     Dosage: 10 MG, 2X/DAY (5MG - TWO TABLETS TWICE DAILY)
     Dates: start: 201211
  3. INLYTA [Suspect]
     Dosage: 10 MG, 2X/DAY (5MG - TWO TABLETS TWICE DAILY)
     Dates: start: 201211
  4. INLYTA [Suspect]
     Dosage: 10 MG, 2X/DAY (5MG - TWO TABLETS TWICE DAILY)
     Dates: start: 201211
  5. INLYTA [Suspect]
     Dosage: 10 MG, 2X/DAY (5MG - TWO TABLETS TWICE DAILY)
     Dates: start: 201211
  6. INLYTA [Suspect]
     Dosage: 10 MG, 2X/DAY [5 MG 2 TAB TWICE DAILY]
     Dates: start: 201211, end: 20131006
  7. INLYTA [Suspect]
     Dosage: 15 MG, (5 MG-TWO TABLETS EVERY MORNING AND ONE TABLET EVERY EVENING)
     Route: 048
     Dates: start: 201211
  8. INLYTA [Suspect]
     Dosage: 15 MG, (5 MG-TWO TABLETS EVERY MORNING AND ONE TABLET EVERY EVENING)
     Route: 048
     Dates: start: 201211

REACTIONS (12)
  - Transient ischaemic attack [Unknown]
  - Fatigue [Unknown]
  - Increased appetite [Unknown]
  - Paraesthesia [Unknown]
  - Feeling abnormal [Unknown]
  - Somnolence [Unknown]
  - Asthenia [Unknown]
  - Dysphonia [Unknown]
  - Constipation [Unknown]
  - Hair growth abnormal [Unknown]
  - Back disorder [Unknown]
  - Acne [Unknown]
